FAERS Safety Report 7982253-6 (Version None)
Quarter: 2011Q4

REPORT INFORMATION
  Report Type: 
  Country: None (occurrence: None)
  Receive Date: 20111215
  Receipt Date: 20111215
  Transmission Date: 20120403
  Serious: No
  Sender: FDA-Public Use
  Company Number: None

PATIENT
  Sex: Female
  Weight: 67.131 kg

DRUGS (2)
  1. TYLENOL PM [Suspect]
     Indication: PAIN
     Dosage: ONE CAPLET AT BEDTIME
     Route: 048
  2. TYLENOL PM [Suspect]
     Indication: SLEEP DISORDER THERAPY
     Dosage: ONE CAPLET AT BEDTIME
     Route: 048

REACTIONS (2)
  - FEELING ABNORMAL [None]
  - PRODUCT QUALITY ISSUE [None]
